FAERS Safety Report 8535747-9 (Version None)
Quarter: 2012Q2

REPORT INFORMATION
  Report Type: 
  Country: None (occurrence: None)
  Receive Date: 20120412
  Receipt Date: 20080901
  Transmission Date: 20120825
  Serious: Yes (Other)
  Sender: FDA-Public Use
  Company Number: PHEH2008US07822

PATIENT
  Sex: Female

DRUGS (1)
  1. ESTALIS COMBIPATCH (ESTRADIOL, NORETHISTERONE ACETATE) TRANS-THERAPEUT [Suspect]
     Dosage: 0.025 ; 0.05

REACTIONS (1)
  - HAEMORRHAGE [None]
